FAERS Safety Report 9380031 (Version 1)
Quarter: 2013Q3

REPORT INFORMATION
  Report Type: Spontaneous
  Country: US (occurrence: US)
  Receive Date: 20130702
  Receipt Date: 20130702
  Transmission Date: 20140515
  Serious: Yes (Hospitalization)
  Sender: FDA-Public Use
  Company Number: US-BAYER-2013-080697

PATIENT
  Age: 31 Year
  Sex: Female

DRUGS (5)
  1. YAZ [Suspect]
  2. YASMIN [Suspect]
  3. TORADOL [Concomitant]
  4. LORTAB [Concomitant]
  5. LAMICTAL [Concomitant]

REACTIONS (1)
  - Intracranial venous sinus thrombosis [Recovered/Resolved]
